FAERS Safety Report 17919875 (Version 5)
Quarter: 2020Q3

REPORT INFORMATION
  Report Type: Spontaneous
  Country: PT (occurrence: PT)
  Receive Date: 20200620
  Receipt Date: 20200826
  Transmission Date: 20201103
  Serious: Yes (Other)
  Sender: FDA-Public Use
  Company Number: PT-AUROBINDO-AUR-APL-2020-028079

PATIENT
  Age: 72 Year
  Sex: Female

DRUGS (1)
  1. METFORMIN [Suspect]
     Active Substance: METFORMIN HYDROCHLORIDE
     Indication: TYPE 2 DIABETES MELLITUS
     Dosage: UNK
     Route: 048

REACTIONS (7)
  - Vitamin B12 deficiency [Recovered/Resolved]
  - Fatigue [Unknown]
  - Colon neoplasm [Unknown]
  - Anaemia macrocytic [Recovered/Resolved]
  - Anaemia vitamin B12 deficiency [Recovered/Resolved]
  - Microcytic anaemia [Unknown]
  - Anaemia megaloblastic [Recovered/Resolved with Sequelae]

NARRATIVE: CASE EVENT DATE: 2010
